FAERS Safety Report 9869353 (Version 2)
Quarter: 2014Q1

REPORT INFORMATION
  Report Type: Report from Study
  Country: CA (occurrence: CA)
  Receive Date: 20140205
  Receipt Date: 20140319
  Transmission Date: 20141002
  Serious: Yes (Hospitalization)
  Sender: FDA-Public Use
  Company Number: CA-JNJFOC-20140119499

PATIENT
  Sex: Male
  Weight: 75 kg

DRUGS (3)
  1. REMICADE [Suspect]
     Indication: RHEUMATOID ARTHRITIS
     Route: 042
     Dates: start: 20101020
  2. HYDROCHLOROTHIAZIDE [Concomitant]
     Route: 065
  3. METHOTREXATE [Concomitant]
     Dosage: FREQUENCY: ^ILLEGIBLE^ WEEKS
     Route: 065

REACTIONS (1)
  - Benign prostatic hyperplasia [Recovered/Resolved]
